FAERS Safety Report 7655029-7 (Version None)
Quarter: 2011Q3

REPORT INFORMATION
  Report Type: 
  Country: None (occurrence: None)
  Receive Date: 20110728
  Receipt Date: 20110713
  Transmission Date: 20111222
  Serious: Yes (Death)
  Sender: FDA-Public Use
  Company Number: TUK2011A00094

PATIENT
  Age: 66 Year
  Sex: Male

DRUGS (29)
  1. HYDROCORTISONE [Concomitant]
  2. MOMETASONE FUROATE [Concomitant]
  3. ONDANSETRON [Concomitant]
  4. WARFARIN SODIUM [Concomitant]
  5. ROPIVACAINE HYDROCHLORIDE [Concomitant]
  6. ASPIRIN [Concomitant]
  7. ACETAMINOPHEN [Concomitant]
  8. ENSURE PLUS (VITAMINS NOS, MINERALS NOS, ELECTROLYTES NOS, CARBOHYDRAT [Concomitant]
  9. ACTOS [Suspect]
     Indication: PRODUCT USED FOR UNKNOWN INDICATION
     Dosage: 30MG, ORAL
     Route: 048
     Dates: start: 20100922
  10. FLUTICASONE PROPIONATE [Concomitant]
  11. TINZAPARIN [Concomitant]
  12. CLONAZEPAM [Concomitant]
  13. GLICLAZIDE [Concomitant]
  14. HYOSCINE HBR HYT [Concomitant]
  15. SODIUM CROMOGLICATE [Concomitant]
  16. FENOFIBRATE [Concomitant]
  17. POLYETHYLENE GLYCOL [Concomitant]
  18. METFFORMIN HYDROCHLORIDE [Concomitant]
  19. ASILONE (SIMETICONE) [Concomitant]
  20. BISACODYL [Concomitant]
  21. OMEPRAZOLE [Concomitant]
  22. PANTOPRAZOLE [Concomitant]
  23. TRAMADOL HCL [Concomitant]
  24. CANSESARTAN CILEXETIL [Concomitant]
  25. DALTEPARIN SODIUM [Concomitant]
  26. FYBOGEL (PLANTAGO OVATA) [Concomitant]
  27. LACTULOSE [Concomitant]
  28. SENNA (SENNA ALEXANDRINA) [Concomitant]
  29. TADALAFIL [Concomitant]

REACTIONS (4)
  - METASTASES TO PERITONEUM [None]
  - METASTASES TO LIVER [None]
  - METASTASES TO LUNG [None]
  - BLADDER CANCER [None]
